FAERS Safety Report 10528095 (Version 1)
Quarter: 2014Q4

REPORT INFORMATION
  Report Type: Spontaneous
  Country: ES (occurrence: None)
  Receive Date: 20141016
  Receipt Date: 20141016
  Transmission Date: 20150528
  Serious: Yes (Hospitalization)
  Sender: FDA-Public Use
  Company Number: FK201404059

PATIENT
  Age: 55 Year
  Sex: Male

DRUGS (4)
  1. G-CSF [Suspect]
     Active Substance: FILGRASTIM
     Indication: PRECURSOR B-LYMPHOBLASTIC LYMPHOMA
  2. CYTARABINE. [Suspect]
     Active Substance: CYTARABINE
     Indication: PRECURSOR B-LYMPHOBLASTIC LYMPHOMA
  3. FLUDARABINE (MANUFACTURER UNKNOWN)  (FLUDARABINE PHOSPHATE) (FLUDARABINE PHOSPHATE) [Suspect]
     Active Substance: FLUDARABINE PHOSPHATE
     Indication: PRECURSOR B-LYMPHOBLASTIC LYMPHOMA
  4. IDARUBICIN HYDROCHLORIDE. [Suspect]
     Active Substance: IDARUBICIN HYDROCHLORIDE
     Indication: PRECURSOR B-LYMPHOBLASTIC LYMPHOMA

REACTIONS (3)
  - Spirochaetal infection [None]
  - Cough [None]
  - Neutropenia [None]
